FAERS Safety Report 17875271 (Version 1)
Quarter: 2020Q2

REPORT INFORMATION
  Report Type: Spontaneous
  Country: US (occurrence: US)
  Receive Date: 20200609
  Receipt Date: 20200609
  Transmission Date: 20200714
  Serious: No
  Sender: FDA-Public Use
  Company Number: US-009507513-2005USA005489

PATIENT
  Age: 73 Year
  Sex: Male

DRUGS (9)
  1. DICLOFEN (DICLOFENAC) [Concomitant]
  2. FOLIC ACID. [Concomitant]
     Active Substance: FOLIC ACID
  3. PREGNYL [Suspect]
     Active Substance: CHORIOGONADOTROPIN ALFA
     Dosage: STRENGH 10000 UNITS; DOSE 1000 UNITS, QD
     Route: 030
     Dates: start: 20190201
  4. PRINIVIL [Concomitant]
     Active Substance: LISINOPRIL
  5. OXYCODONE [Concomitant]
     Active Substance: OXYCODONE
  6. CARVEDILOL. [Concomitant]
     Active Substance: CARVEDILOL
  7. CLOPIDOGREL [Concomitant]
     Active Substance: CLOPIDOGREL BISULFATE
  8. APAP [Concomitant]
     Active Substance: ACETAMINOPHEN
  9. BREO ELLIPTA [Concomitant]
     Active Substance: FLUTICASONE FUROATE\VILANTEROL TRIFENATATE

REACTIONS (4)
  - Product quality issue [Unknown]
  - Product dose omission [Unknown]
  - Inappropriate schedule of product administration [Unknown]
  - Circumstance or information capable of leading to medication error [Unknown]

NARRATIVE: CASE EVENT DATE: 20200429
